FAERS Safety Report 24636416 (Version 2)
Quarter: 2024Q4

REPORT INFORMATION
  Report Type: Spontaneous
  Country: CN (occurrence: CN)
  Receive Date: 20241119
  Receipt Date: 20241126
  Transmission Date: 20250115
  Serious: Yes (Other)
  Sender: SANOFI AVENTIS
  Company Number: CN-MLMSERVICE-20241106-PI251195-00077-1

PATIENT
  Age: 57 Year
  Sex: Male

DRUGS (4)
  1. OXALIPLATIN [Suspect]
     Active Substance: OXALIPLATIN
     Indication: Rectal cancer stage IV
     Dosage: 130 MG/M2, QCY (ON DAY 1)
     Route: 042
     Dates: start: 2020, end: 2020
  2. OXALIPLATIN [Suspect]
     Active Substance: OXALIPLATIN
     Indication: Metastases to liver
     Dosage: 100 MG/M2, QCY, (ON DAY 1)
     Route: 042
     Dates: start: 2020, end: 2021
  3. CAPECITABINE [Suspect]
     Active Substance: CAPECITABINE
     Indication: Rectal cancer stage IV
     Dosage: 1500 MG/M2, BID, (DAYS 1?14)] EVERY 3 WEEKS
     Route: 048
     Dates: start: 2020, end: 2021
  4. CAPECITABINE [Suspect]
     Active Substance: CAPECITABINE
     Indication: Metastases to liver
     Dosage: 1500 MG/M2, BID, (DAYS 1?14)
     Route: 048
     Dates: start: 2020, end: 2021

REACTIONS (2)
  - Granulocytopenia [Unknown]
  - Nausea [Unknown]
